FAERS Safety Report 23625613 (Version 2)
Quarter: 2024Q4

REPORT INFORMATION
  Report Type: Spontaneous
  Country: US (occurrence: US)
  Receive Date: 20240313
  Receipt Date: 20241007
  Transmission Date: 20250115
  Serious: No
  Sender: BAUSCH AND LOMB
  Company Number: US-BAUSCHBL-2024BNL002821

PATIENT
  Age: 67 Year
  Sex: Female

DRUGS (2)
  1. ALAWAY [Suspect]
     Active Substance: KETOTIFEN FUMARATE
     Indication: Eye pruritus
     Route: 065
  2. ALAWAY PRESERVATIVE FREE [Suspect]
     Active Substance: KETOTIFEN FUMARATE
     Indication: Eye pruritus
     Route: 065

REACTIONS (12)
  - Migraine [Unknown]
  - Dry eye [Unknown]
  - Pain [Unknown]
  - Burning sensation [Unknown]
  - Pruritus [Unknown]
  - Sensation of foreign body [Unknown]
  - Erythema [Unknown]
  - Swelling [Unknown]
  - Lacrimation increased [Unknown]
  - Blister [Unknown]
  - Eye inflammation [Unknown]
  - Dysgeusia [Unknown]
